FAERS Safety Report 9138087 (Version 1)
Quarter: 2013Q1

REPORT INFORMATION
  Report Type: Spontaneous
  Country: US (occurrence: US)
  Receive Date: 20130304
  Receipt Date: 20130304
  Transmission Date: 20140127
  Serious: No
  Sender: FDA-Public Use
  Company Number: US-BAYER-2013-025692

PATIENT
  Age: 71 Year
  Sex: Female
  Weight: 78.46 kg

DRUGS (13)
  1. ALEVE LIQUID GELS [Suspect]
     Indication: MYALGIA
     Dosage: 1 DF, QD
     Route: 048
     Dates: start: 20130215, end: 20130220
  2. ALEVE CAPLET/TABLET,MIDOL EXTENDED RELIEF CAPLET [Suspect]
     Indication: MYALGIA
     Dosage: UNK
     Route: 048
     Dates: start: 201212, end: 201212
  3. BAYER ASPIRIN REGIMEN ADULT LOW STRENGTH [Concomitant]
  4. FEMARA [Concomitant]
  5. VITAMIN B12 [Concomitant]
  6. VITAMIN D [Concomitant]
  7. MAGNESIUM [Concomitant]
  8. ZINC [Concomitant]
  9. SIMVASTATIN [Concomitant]
  10. METFORMIN [Concomitant]
  11. FISH OIL [Concomitant]
  12. ATENOLOL [Concomitant]
  13. PLAVIX [Concomitant]

REACTIONS (2)
  - Drug ineffective [Not Recovered/Not Resolved]
  - Drug ineffective [None]
